FAERS Safety Report 12919623 (Version 1)
Quarter: 2016Q4

REPORT INFORMATION
  Report Type: Spontaneous
  Country: CY (occurrence: CY)
  Receive Date: 20161108
  Receipt Date: 20161108
  Transmission Date: 20170207
  Serious: Yes (Other)
  Sender: FDA-Public Use
  Company Number: CY-ASTRAZENECA-2016SF15468

PATIENT
  Age: 591 Month
  Sex: Female

DRUGS (2)
  1. CAPECITABINE. [Concomitant]
     Active Substance: CAPECITABINE
  2. FASLODEX [Suspect]
     Active Substance: FULVESTRANT
     Indication: BREAST CANCER FEMALE
     Route: 030
     Dates: start: 20111001, end: 20111230

REACTIONS (5)
  - Metastases to liver [Unknown]
  - Lymphadenopathy [Unknown]
  - Spinal fracture [Unknown]
  - Adrenal disorder [Unknown]
  - Asthenia [Unknown]

NARRATIVE: CASE EVENT DATE: 201103
